FAERS Safety Report 22399466 (Version 2)
Quarter: 2023Q2

REPORT INFORMATION
  Report Type: Spontaneous
  Country: US (occurrence: US)
  Receive Date: 20230602
  Receipt Date: 20230629
  Transmission Date: 20230722
  Serious: No
  Sender: FDA-Public Use
  Company Number: US-AMGEN-USASP2023093323

PATIENT
  Age: 60 Year
  Sex: Female

DRUGS (1)
  1. REPATHA [Suspect]
     Active Substance: EVOLOCUMAB
     Indication: Hyperlipidaemia
     Dosage: 140 MILLIGRAM
     Route: 065

REACTIONS (5)
  - Accidental exposure to product [Unknown]
  - Drug dose omission by device [Unknown]
  - Device difficult to use [Unknown]
  - Blood cholesterol increased [Unknown]
  - Device use error [Unknown]

NARRATIVE: CASE EVENT DATE: 20230501
